FAERS Safety Report 7928966-3 (Version None)
Quarter: 2011Q4

REPORT INFORMATION
  Report Type: 
  Country: None (occurrence: None)
  Receive Date: 20111118
  Receipt Date: 20111110
  Transmission Date: 20120403
  Serious: Yes (Hospitalization, Disabling, Other)
  Sender: FDA-Public Use
  Company Number: US-MERCK-1107USA03581

PATIENT
  Age: 86 Year
  Sex: Female
  Weight: 75 kg

DRUGS (9)
  1. LEVOXYL [Concomitant]
     Indication: HYPOTHYROIDISM
     Route: 065
     Dates: start: 20000101
  2. ALENDRONATE SODIUM [Suspect]
     Route: 048
     Dates: start: 20091215, end: 20100901
  3. FOSAMAX [Suspect]
     Indication: OSTEOPOROSIS
     Route: 048
     Dates: start: 20090113, end: 20100901
  4. CENTRUM SILVER [Concomitant]
     Route: 065
  5. VITAMIN D (UNSPECIFIED) [Concomitant]
     Route: 065
  6. ACTONEL [Suspect]
     Indication: OSTEOPOROSIS
     Route: 065
     Dates: start: 20060413, end: 20090113
  7. FOSAMAX [Suspect]
     Route: 048
     Dates: start: 20060413, end: 20090113
  8. ACTONEL [Suspect]
     Route: 065
     Dates: start: 20060322
  9. CYANOCOBALAMIN [Concomitant]
     Route: 065

REACTIONS (27)
  - DEMENTIA ALZHEIMER'S TYPE [None]
  - DEVICE FAILURE [None]
  - URETHRAL INTRINSIC SPHINCTER DEFICIENCY [None]
  - HALLUCINATION, AUDITORY [None]
  - ANAEMIA [None]
  - ADVERSE DRUG REACTION [None]
  - HAEMORRHAGIC ANAEMIA [None]
  - PELVIC PROLAPSE [None]
  - CEREBRAL ISCHAEMIA [None]
  - FEMUR FRACTURE [None]
  - DYSLIPIDAEMIA [None]
  - VERTIGO [None]
  - ARTHRALGIA [None]
  - GASTROENTERITIS [None]
  - URINARY INCONTINENCE [None]
  - OSTEOARTHRITIS [None]
  - FALL [None]
  - CAROTID ARTERY STENOSIS [None]
  - OSTEOPENIA [None]
  - LIVER FUNCTION TEST ABNORMAL [None]
  - CARDIOMEGALY [None]
  - URINARY TRACT INFECTION [None]
  - MENTAL DISORDER [None]
  - BACK PAIN [None]
  - ANAEMIA POSTOPERATIVE [None]
  - AUTOIMMUNE DISORDER [None]
  - CARDIAC MURMUR [None]
